FAERS Safety Report 6959062-X (Version None)
Quarter: 2010Q3

REPORT INFORMATION
  Report Type: 
  Country: None (occurrence: None)
  Receive Date: 20100831
  Receipt Date: 20100825
  Transmission Date: 20110219
  Serious: Yes (Other)
  Sender: FDA-Public Use
  Company Number: CHPA2010US13738

PATIENT
  Age: 64 Year
  Sex: Female

DRUGS (19)
  1. CONTROL PLP (NCH) [Suspect]
     Indication: SMOKING CESSATION THERAPY
     Dosage: 21 MG, QD
     Route: 062
     Dates: start: 20100419, end: 20100422
  2. PLAVIX [Concomitant]
  3. XANAX [Concomitant]
  4. TRAZODONE HCL [Concomitant]
  5. METOPROLOL TARTRATE [Concomitant]
  6. NEXIUM [Concomitant]
  7. CARISOPRODOL [Concomitant]
  8. CALCIUM [Concomitant]
  9. LISINOPRIL [Concomitant]
  10. EFFEXOR [Concomitant]
  11. ASPIRIN [Concomitant]
  12. GEMFIBROZIL [Concomitant]
  13. ZOLOFT [Concomitant]
  14. DIPHENHYDRAMINE HCL [Concomitant]
  15. DILTIAZEM [Concomitant]
  16. AMITRIPTYLINE HCL [Concomitant]
  17. ACCOLATE [Concomitant]
  18. TRAMADOL HCL [Concomitant]
  19. DRUG THERAPY NOS [Concomitant]

REACTIONS (4)
  - APPLICATION SITE ERYTHEMA [None]
  - APPLICATION SITE PAIN [None]
  - APPLICATION SITE PRURITUS [None]
  - LUNG OPERATION [None]
